FAERS Safety Report 6497337-1 (Version None)
Quarter: 2009Q4

REPORT INFORMATION
  Report Type: 
  Country: None (occurrence: None)
  Receive Date: 20091215
  Receipt Date: 20091029
  Transmission Date: 20100525
  Serious: No
  Sender: FDA-Public Use
  Company Number: A0809550A

PATIENT
  Age: 67 Year
  Sex: Male
  Weight: 90.9 kg

DRUGS (3)
  1. AVODART [Suspect]
     Indication: BENIGN PROSTATIC HYPERPLASIA
     Dosage: .5MG PER DAY
     Route: 048
     Dates: start: 20080901, end: 20090915
  2. MOBIC [Concomitant]
  3. PRILOSEC [Concomitant]

REACTIONS (6)
  - AXILLARY PAIN [None]
  - BACK PAIN [None]
  - BREAST PAIN [None]
  - GYNAECOMASTIA [None]
  - PARAESTHESIA [None]
  - PRURITUS [None]
